FAERS Safety Report 17218278 (Version 1)
Quarter: 2019Q4

REPORT INFORMATION
  Report Type: Spontaneous
  Country: US (occurrence: US)
  Receive Date: 20191231
  Receipt Date: 20191231
  Transmission Date: 20200122
  Serious: Yes (Hospitalization)
  Sender: FDA-Public Use
  Company Number: US-STRIDES ARCOLAB LIMITED-2019SP013279

PATIENT
  Age: 62 Year
  Sex: Male

DRUGS (7)
  1. VANCOMYCIN [Suspect]
     Active Substance: VANCOMYCIN
     Indication: EVIDENCE BASED TREATMENT
     Dosage: 1.25 GRAM
     Route: 042
  2. NAFCILLIN [Concomitant]
     Active Substance: NAFCILLIN SODIUM
     Indication: STAPHYLOCOCCAL INFECTION
  3. CEFTRIAXONE. [Suspect]
     Active Substance: CEFTRIAXONE
     Indication: EVIDENCE BASED TREATMENT
     Dosage: 2 GRAM
     Route: 042
  4. NAFCILLIN [Concomitant]
     Active Substance: NAFCILLIN SODIUM
     Indication: INTERVERTEBRAL DISCITIS
     Dosage: UNK
     Route: 042
  5. CEFTRIAXONE. [Suspect]
     Active Substance: CEFTRIAXONE
     Indication: SEPSIS
  6. VANCOMYCIN [Suspect]
     Active Substance: VANCOMYCIN
     Indication: SEPSIS
     Dosage: 1.5 GRAM, EVERY 12 HRS
     Route: 042
  7. CEFEPIME [Suspect]
     Active Substance: CEFEPIME HYDROCHLORIDE
     Indication: SEPSIS
     Dosage: 2 GRAM, EVERY 12 HRS
     Route: 042

REACTIONS (6)
  - Agranulocytosis [Recovered/Resolved]
  - Neutropenia [Recovered/Resolved]
  - Thrombocytopenia [Recovered/Resolved]
  - Anaemia [Unknown]
  - Pancytopenia [Recovered/Resolved]
  - Aplastic anaemia [Unknown]
